FAERS Safety Report 6764108-8 (Version None)
Quarter: 2010Q2

REPORT INFORMATION
  Report Type: 
  Country: None (occurrence: None)
  Receive Date: 20100608
  Receipt Date: 20100526
  Transmission Date: 20101027
  Serious: Yes (Death, Life-Threatening, Hospitalization, Other)
  Sender: FDA-Public Use
  Company Number: 2010SCPR000417

PATIENT
  Age: 79 Year
  Sex: Female
  Weight: 81 kg

DRUGS (9)
  1. IBUPROFEN [Suspect]
     Indication: PAIN
     Dosage: 400 MG, TID, ORAL, 400 MG, BID, ORAL
     Route: 048
     Dates: start: 20091007, end: 20091021
  2. IBUPROFEN [Suspect]
     Indication: RIB FRACTURE
     Dosage: 400 MG, TID, ORAL, 400 MG, BID, ORAL
     Route: 048
     Dates: start: 20091007, end: 20091021
  3. IBUPROFEN [Suspect]
     Indication: PAIN
     Dosage: 400 MG, TID, ORAL, 400 MG, BID, ORAL
     Route: 048
     Dates: start: 20091022, end: 20091029
  4. IBUPROFEN [Suspect]
     Indication: RIB FRACTURE
     Dosage: 400 MG, TID, ORAL, 400 MG, BID, ORAL
     Route: 048
     Dates: start: 20091022, end: 20091029
  5. ENALAPRIL (ENALAPRIL) UNKNOWN, 20MG [Suspect]
     Indication: HYPERTENSION
     Dosage: 20 MG, UNKNOWN, ORAL
     Route: 048
     Dates: start: 20030101, end: 20091029
  6. AMIODARON (AMIODARONE HYDROCHLORIDE) [Concomitant]
  7. ASPIRIN [Concomitant]
  8. BISOPROLOL FUMARATE [Concomitant]
  9. HYDROCHLOROTHIAZIDE [Concomitant]

REACTIONS (20)
  - ATRIAL FIBRILLATION [None]
  - BLOOD CULTURE POSITIVE [None]
  - CARDIAC ARREST [None]
  - CEREBROVASCULAR ACCIDENT [None]
  - CHOLESTASIS [None]
  - FALL [None]
  - HEART RATE DECREASED [None]
  - HYPOTENSION [None]
  - ILEUS PARALYTIC [None]
  - METABOLIC ACIDOSIS [None]
  - NOSOCOMIAL INFECTION [None]
  - RENAL FAILURE ACUTE [None]
  - RIB FRACTURE [None]
  - SEPTIC SHOCK [None]
  - STAPHYLOCOCCUS TEST POSITIVE [None]
  - TACHYARRHYTHMIA [None]
  - URINARY TRACT INFECTION [None]
  - URINARY TRACT INFECTION STAPHYLOCOCCAL [None]
  - VOMITING [None]
  - WAIST CIRCUMFERENCE INCREASED [None]
